FAERS Safety Report 9893754 (Version 4)
Quarter: 2014Q2

REPORT INFORMATION
  Report Type: Spontaneous
  Country: FI (occurrence: FI)
  Receive Date: 20140213
  Receipt Date: 20140408
  Transmission Date: 20141212
  Serious: Yes (Death)
  Sender: FDA-Public Use
  Company Number: FI-PFIZER INC-2014039563

PATIENT
  Age: 39 Year
  Sex: Male

DRUGS (8)
  1. LYRICA [Suspect]
     Dosage: 225 MG, 2X/DAY
  2. LYRICA [Suspect]
     Dosage: 300 MG, 2X/DAY
     Dates: start: 20130712
  3. THYROXIN [Concomitant]
     Dosage: 0.1 MG, 1/2X1
  4. ARCOXIA [Concomitant]
     Dosage: 60 MG, UNK
  5. RIVATRIL [Concomitant]
     Dosage: 2 MG, UNK
  6. VOXRA [Concomitant]
     Dosage: 300 MG, 1X/DAY
  7. DOLMED [Concomitant]
     Dosage: 5 MG, 2X3
  8. XANOR [Concomitant]
     Dosage: 0.5 MG, AS NEEDED

REACTIONS (1)
  - Death [Fatal]
